FAERS Safety Report 5120111-5 (Version None)
Quarter: 2006Q4

REPORT INFORMATION
  Report Type: 
  Country: None (occurrence: None)
  Receive Date: 20061002
  Receipt Date: 20061002
  Transmission Date: 20070319
  Serious: Yes (Other)
  Sender: FDA-Public Use
  Company Number: None

PATIENT
  Age: 39 Year
  Sex: Female
  Weight: 62.1428 kg

DRUGS (1)
  1. MONISTAT [Suspect]
     Indication: VULVOVAGINAL MYCOTIC INFECTION
     Dosage: 1200 MG ONCE VAG
     Route: 067
     Dates: start: 20060927, end: 20060927

REACTIONS (3)
  - DIZZINESS [None]
  - NAUSEA [None]
  - URTICARIA [None]
